FAERS Safety Report 6069226-8 (Version None)
Quarter: 2009Q1

REPORT INFORMATION
  Report Type: 
  Country: None (occurrence: None)
  Receive Date: 20090206
  Receipt Date: 20090128
  Transmission Date: 20090719
  Serious: Yes (Hospitalization, Other)
  Sender: FDA-Public Use
  Company Number: PHHY2009BR03050

PATIENT
  Sex: Female

DRUGS (3)
  1. TRILEPTAL [Suspect]
     Indication: EPILEPSY
     Dosage: 600 MG,  THREE TABLETS DAILY (MORNING, AFTERNOON, NIGHT),
     Route: 048
  2. DEPAKOTE [Concomitant]
     Indication: EPILEPSY
     Dosage: 500 MG, QD
     Route: 048
  3. FRISIUM [Concomitant]
     Dosage: ONE TABLET AT NIGHT
     Route: 048

REACTIONS (6)
  - ABDOMINAL PAIN [None]
  - BACTERIA URINE IDENTIFIED [None]
  - HAEMORRHAGE [None]
  - INTRA-UTERINE CONTRACEPTIVE DEVICE EXPELLED [None]
  - IUD MIGRATION [None]
  - MENORRHAGIA [None]
